FAERS Safety Report 25123308 (Version 1)
Quarter: 2025Q1

REPORT INFORMATION
  Report Type: Spontaneous
  Country: US (occurrence: US)
  Receive Date: 20250326
  Receipt Date: 20250326
  Transmission Date: 20250409
  Serious: No
  Sender: GRIFOLS
  Company Number: US-IGSA-BIG0031768

PATIENT
  Sex: Female
  Weight: 68.027 kg

DRUGS (18)
  1. PROLASTIN-C LIQUID [Suspect]
     Active Substance: .ALPHA.1-PROTEINASE INHIBITOR HUMAN
     Indication: Alpha-1 antitrypsin deficiency
     Dosage: 4120 MILLIGRAM, Q.WK.
     Route: 042
  2. LETROZOLE [Concomitant]
     Active Substance: LETROZOLE
  3. FAMOTIDINE [Concomitant]
     Active Substance: FAMOTIDINE
  4. ANORO ELLIPTA [Concomitant]
     Active Substance: UMECLIDINIUM BROMIDE\VILANTEROL TRIFENATATE
  5. ASPIRIN [Concomitant]
     Active Substance: ASPIRIN
  6. METOPROLOL SUCCINATE [Concomitant]
     Active Substance: METOPROLOL SUCCINATE
  7. ROSUVASTATIN CALCIUM [Concomitant]
     Active Substance: ROSUVASTATIN CALCIUM
  8. MONTELUKAST SODIUM AND LEVOCETIRIZINE DIHYDROCHLORIDE [Concomitant]
  9. FOLIC ACID [Concomitant]
     Active Substance: FOLIC ACID
  10. IPRATROPIUM BROMIDE [Concomitant]
     Active Substance: IPRATROPIUM BROMIDE
  11. EPINEPHRINE [Concomitant]
     Active Substance: EPINEPHRINE
  12. HEPARIN [Concomitant]
     Active Substance: HEPARIN SODIUM
  13. LIDOCAINE\PRILOCAINE [Concomitant]
     Active Substance: LIDOCAINE\PRILOCAINE
  14. SODIUM CHLORIDE [Concomitant]
     Active Substance: SODIUM CHLORIDE
  15. PROLIA [Concomitant]
     Active Substance: DENOSUMAB
  16. PULMICORT FLEXHALER [Concomitant]
     Active Substance: BUDESONIDE
  17. PROAIR DIGIHALER [Concomitant]
     Active Substance: ALBUTEROL SULFATE
  18. ADCIRCA [Concomitant]
     Active Substance: TADALAFIL

REACTIONS (1)
  - Bronchitis [Unknown]
